FAERS Safety Report 9715198 (Version 2)
Quarter: 2013Q4

REPORT INFORMATION
  Report Type: Spontaneous
  Country: GB (occurrence: GB)
  Receive Date: 20131126
  Receipt Date: 20131126
  Transmission Date: 20140711
  Serious: Yes (Other)
  Sender: FDA-Public Use
  Company Number: GB-JNJFOC-20121204028

PATIENT
  Age: 66 Year
  Sex: Female
  Weight: 88.91 kg

DRUGS (9)
  1. SUDAFED DECONGESTANT [Suspect]
     Indication: NASAL CONGESTION
     Route: 048
     Dates: start: 20121130, end: 20121130
  2. RASAGILINE [Interacting]
     Indication: PARKINSON^S DISEASE
     Route: 065
     Dates: start: 201208
  3. ROPINIROLE [Concomitant]
     Indication: PARKINSON^S DISEASE
     Route: 048
     Dates: start: 201208
  4. REGURIN [Concomitant]
     Indication: DYSURIA
     Route: 048
  5. CO-CARELDOPA [Concomitant]
     Indication: PARKINSON^S DISEASE
     Route: 048
     Dates: start: 201208
  6. SINEMET PLUS [Concomitant]
     Indication: PARKINSON^S DISEASE
     Route: 048
     Dates: start: 201208
  7. SINEMET CR [Concomitant]
     Indication: PARKINSON^S DISEASE
     Route: 048
  8. NAPROXEN [Concomitant]
     Indication: PRODUCT USED FOR UNKNOWN INDICATION
     Route: 065
  9. OMEPRAZOLE [Concomitant]
     Indication: PRODUCT USED FOR UNKNOWN INDICATION
     Route: 065

REACTIONS (5)
  - Drug interaction [Unknown]
  - Headache [Recovered/Resolved]
  - Feeling hot [Recovered/Resolved]
  - Tremor [Recovered/Resolved]
  - Vomiting [Recovered/Resolved]
